FAERS Safety Report 9361353 (Version 1)
Quarter: 2013Q2

REPORT INFORMATION
  Report Type: Spontaneous
  Country: DE (occurrence: DE)
  Receive Date: 20130621
  Receipt Date: 20130621
  Transmission Date: 20140414
  Serious: Yes (Death)
  Sender: FDA-Public Use
  Company Number: DE-JNJFOC-20130609745

PATIENT
  Sex: 0

DRUGS (2)
  1. RISPERIDONE [Suspect]
     Indication: SCHIZOAFFECTIVE DISORDER
     Dosage: EXTENDED UPTO 50 MG ONCE IN 2 WEEKS
     Route: 030
  2. RISPERIDONE [Suspect]
     Indication: SCHIZOPHRENIA
     Dosage: EXTENDED UPTO 50 MG ONCE IN 2 WEEKS
     Route: 030

REACTIONS (2)
  - Deep vein thrombosis [Fatal]
  - Peptic ulcer perforation [Fatal]
